FAERS Safety Report 4303779-2 (Version None)
Quarter: 2004Q1

REPORT INFORMATION
  Report Type: 
  Country: None (occurrence: None)
  Receive Date: 20040225
  Receipt Date: 20031225
  Transmission Date: 20041129
  Serious: Yes (Hospitalization, Other)
  Sender: FDA-Public Use
  Company Number: PHFR2003GB04974

PATIENT
  Age: 43 Year
  Sex: Female

DRUGS (7)
  1. CLOZARIL [Suspect]
     Indication: SCHIZOPHRENIA
     Dosage: 12.5MG/DAY
     Dates: start: 20031128, end: 20031214
  2. CLOZARIL [Suspect]
     Route: 048
     Dates: start: 20031223, end: 20031224
  3. VENLAFAXINE HCL [Concomitant]
     Dosage: 37.5 MG/DAY
     Route: 048
  4. LITHIUM CARBONATE [Concomitant]
     Dosage: 1 G/DAY
     Route: 048
  5. ASPIRIN [Concomitant]
     Dosage: 75 MG/DAY
     Route: 048
  6. SALBUTAMOL [Concomitant]
  7. BECOTIDE [Concomitant]

REACTIONS (6)
  - EOSINOPHILIA [None]
  - HYPERSENSITIVITY [None]
  - LOWER RESPIRATORY TRACT INFECTION [None]
  - NEUTROPHILIA [None]
  - PYREXIA [None]
  - RASH [None]
